FAERS Safety Report 18512477 (Version 2)
Quarter: 2021Q4

REPORT INFORMATION
  Report Type: Spontaneous
  Country: US (occurrence: US)
  Receive Date: 20201117
  Receipt Date: 20211210
  Transmission Date: 20220303
  Serious: Yes (Other)
  Sender: FDA-Public Use
  Company Number: US-LUPIN PHARMACEUTICALS INC.-2020-08978

PATIENT
  Age: 8 Month
  Sex: Male
  Weight: 8.1 kg

DRUGS (4)
  1. CLONIDINE [Suspect]
     Active Substance: CLONIDINE
     Indication: Spinal anaesthesia
     Dosage: 8 MICROGRAM (FORM: INJECTION)
     Route: 037
  2. MIDAZOLAM [Suspect]
     Active Substance: MIDAZOLAM
     Indication: Premedication
     Dosage: 6 MILLIGRAM (PREMEDICATION)
     Route: 048
  3. BUPIVACAINE [Suspect]
     Active Substance: BUPIVACAINE
     Indication: Spinal anaesthesia
     Dosage: 5 MILLIGRAM
  4. EPINEPHRINE [Suspect]
     Active Substance: EPINEPHRINE
     Indication: Spinal anaesthesia
     Dosage: 1:200000

REACTIONS (2)
  - Corneal reflex decreased [Recovered/Resolved]
  - Areflexia [Recovered/Resolved]
